FAERS Safety Report 11847156 (Version 1)
Quarter: 2015Q4

REPORT INFORMATION
  Report Type: Spontaneous
  Country: US (occurrence: US)
  Receive Date: 20151217
  Receipt Date: 20151217
  Transmission Date: 20160305
  Serious: No
  Sender: FDA-Public Use
  Company Number: US-ROCHE-1524404

PATIENT
  Age: 72 Year
  Sex: Male

DRUGS (3)
  1. LATANOPROST EYE DROPS [Concomitant]
     Active Substance: LATANOPROST
     Indication: GLAUCOMA
     Route: 065
  2. TAMIFLU [Suspect]
     Active Substance: OSELTAMIVIR PHOSPHATE
     Indication: INFLUENZA
     Route: 065
     Dates: start: 20150113, end: 20150114
  3. CRESTOR [Concomitant]
     Active Substance: ROSUVASTATIN CALCIUM

REACTIONS (2)
  - Mental impairment [Recovered/Resolved]
  - Dyspraxia [Recovered/Resolved]

NARRATIVE: CASE EVENT DATE: 20150114
